FAERS Safety Report 6046228-9 (Version None)
Quarter: 2009Q1

REPORT INFORMATION
  Report Type: 
  Country: None (occurrence: None)
  Receive Date: 20090122
  Receipt Date: 20090115
  Transmission Date: 20090719
  Serious: Yes (Death, Other)
  Sender: FDA-Public Use
  Company Number: JP-BRISTOL-MYERS SQUIBB COMPANY-14440770

PATIENT
  Age: 55 Year
  Sex: Female
  Weight: 36 kg

DRUGS (5)
  1. ERBITUX [Suspect]
     Indication: COLON CANCER
     Dosage: 01-DEC-2008
     Route: 042
     Dates: start: 20081201, end: 20081201
  2. POLARAMINE [Concomitant]
     Indication: PREMEDICATION
     Dosage: FORMULATION: INJECTION
     Route: 042
     Dates: start: 20081201, end: 20081201
  3. DECADRON [Concomitant]
     Indication: PREMEDICATION
     Dosage: FORMULATION: INJECTION
     Route: 042
     Dates: start: 20081201, end: 20081201
  4. OXINORM [Concomitant]
     Indication: ABDOMINAL PAIN
     Route: 048
     Dates: end: 20081207
  5. FENTANYL CITRATE [Concomitant]
     Indication: ABDOMINAL PAIN
     Route: 062
     Dates: start: 20081109, end: 20081207

REACTIONS (1)
  - ILEUS [None]
